FAERS Safety Report 19170090 (Version 6)
Quarter: 2021Q4

REPORT INFORMATION
  Report Type: Report from Study
  Country: None (occurrence: DE)
  Receive Date: 20210422
  Receipt Date: 20211015
  Transmission Date: 20220304
  Serious: Yes (Hospitalization)
  Sender: FDA-Public Use
  Company Number: DE-JNJFOC-20210326525

PATIENT
  Age: 57 Year
  Sex: Female
  Weight: 68.3 kg

DRUGS (29)
  1. IBRUTINIB [Suspect]
     Active Substance: IBRUTINIB
     Indication: Diffuse large B-cell lymphoma
     Route: 048
     Dates: start: 20210302, end: 20210307
  2. IBRUTINIB [Suspect]
     Active Substance: IBRUTINIB
     Route: 048
     Dates: start: 20210311, end: 20210315
  3. RITUXIMAB [Concomitant]
     Active Substance: RITUXIMAB
     Indication: Diffuse large B-cell lymphoma
     Route: 042
     Dates: start: 20210301, end: 20210301
  4. RITUXIMAB [Concomitant]
     Active Substance: RITUXIMAB
     Dosage: CYCLE 4
     Route: 042
     Dates: start: 20210316, end: 20210316
  5. RITUXIMAB [Concomitant]
     Active Substance: RITUXIMAB
     Route: 042
     Dates: start: 20210408, end: 20210411
  6. CYCLOPHOSPHAMIDE [Concomitant]
     Active Substance: CYCLOPHOSPHAMIDE
     Indication: Diffuse large B-cell lymphoma
     Route: 042
     Dates: start: 20210302, end: 20210302
  7. CYCLOPHOSPHAMIDE [Concomitant]
     Active Substance: CYCLOPHOSPHAMIDE
     Dosage: CYCLE 4
     Route: 042
     Dates: start: 20210316
  8. CYCLOPHOSPHAMIDE [Concomitant]
     Active Substance: CYCLOPHOSPHAMIDE
     Route: 042
     Dates: start: 20210408, end: 20210411
  9. CYCLOPHOSPHAMIDE [Concomitant]
     Active Substance: CYCLOPHOSPHAMIDE
     Route: 042
     Dates: start: 20210317, end: 20210317
  10. VINCRISTINE [Concomitant]
     Active Substance: VINCRISTINE
     Indication: Diffuse large B-cell lymphoma
     Route: 042
     Dates: start: 20210302, end: 20210302
  11. VINCRISTINE [Concomitant]
     Active Substance: VINCRISTINE
     Dosage: CYCLE 4
     Route: 042
     Dates: start: 20210316
  12. VINCRISTINE [Concomitant]
     Active Substance: VINCRISTINE
     Route: 042
     Dates: start: 20210408, end: 20210411
  13. VINCRISTINE [Concomitant]
     Active Substance: VINCRISTINE
     Dosage: MAX: 2MG
     Route: 042
     Dates: start: 20210317, end: 20210317
  14. ETOPOSIDE [Concomitant]
     Active Substance: ETOPOSIDE
     Indication: Diffuse large B-cell lymphoma
     Route: 042
     Dates: start: 20210302
  15. ETOPOSIDE [Concomitant]
     Active Substance: ETOPOSIDE
     Dosage: CUMULATIVE DOSE OF COURSE : 514.37 MG
     Route: 042
     Dates: start: 20210316
  16. ETOPOSIDE [Concomitant]
     Active Substance: ETOPOSIDE
     Route: 042
     Dates: start: 20210317, end: 20210319
  17. ETOPOSIDE [Concomitant]
     Active Substance: ETOPOSIDE
     Route: 042
     Dates: start: 20210303
  18. ETOPOSIDE [Concomitant]
     Active Substance: ETOPOSIDE
     Route: 042
     Dates: start: 20210304
  19. DOXORUBICIN [Concomitant]
     Active Substance: DOXORUBICIN
     Indication: Diffuse large B-cell lymphoma
     Route: 042
     Dates: start: 20210302, end: 20210302
  20. DOXORUBICIN [Concomitant]
     Active Substance: DOXORUBICIN
     Route: 042
     Dates: start: 20210316
  21. DOXORUBICIN [Concomitant]
     Active Substance: DOXORUBICIN
     Route: 042
     Dates: start: 20210317, end: 20210317
  22. MESNA [Concomitant]
     Active Substance: MESNA
     Indication: Diffuse large B-cell lymphoma
     Route: 042
     Dates: start: 20210301, end: 20210302
  23. MESNA [Concomitant]
     Active Substance: MESNA
     Route: 042
     Dates: start: 20210316
  24. MESNA [Concomitant]
     Active Substance: MESNA
     Route: 042
     Dates: start: 20210316, end: 20210317
  25. PREDNISOLONE [Concomitant]
     Active Substance: PREDNISOLONE
     Indication: Diffuse large B-cell lymphoma
     Route: 048
     Dates: start: 20210302, end: 20210306
  26. PREDNISOLONE [Concomitant]
     Active Substance: PREDNISOLONE
     Dosage: CUMULATIVE DOSE OF COURSE : 500MG
     Route: 048
     Dates: start: 20210316
  27. PREDNISOLONE [Concomitant]
     Active Substance: PREDNISOLONE
     Route: 048
     Dates: start: 20210316, end: 20210320
  28. AMOXICILLIN/CLAVULANIC ACID AB [Concomitant]
     Indication: Sinusitis
     Dosage: 2625/375 MG
     Route: 048
     Dates: start: 20210401, end: 20210407
  29. TINZAPARIN [Concomitant]
     Active Substance: TINZAPARIN
     Indication: Product used for unknown indication
     Dosage: 140000 IE
     Route: 058
     Dates: start: 20210325

REACTIONS (7)
  - Chronic sinusitis [Recovered/Resolved]
  - Condition aggravated [Recovered/Resolved]
  - Diarrhoea [Recovered/Resolved]
  - Infection [Recovered/Resolved]
  - Sepsis [Recovered/Resolved]
  - Sinus tachycardia [Recovered/Resolved]
  - General physical health deterioration [Recovered/Resolved]

NARRATIVE: CASE EVENT DATE: 20210308
